FAERS Safety Report 10718777 (Version 2)
Quarter: 2015Q1

REPORT INFORMATION
  Report Type: Spontaneous
  Country: US (occurrence: US)
  Receive Date: 20150119
  Receipt Date: 20150119
  Transmission Date: 20150721
  Serious: No
  Sender: FDA-Public Use
  Company Number: US-UNITED THERAPEUTICS-UNT-2014-005381

PATIENT
  Sex: Female
  Weight: 62.13 kg

DRUGS (1)
  1. REMODULIN [Suspect]
     Active Substance: TREPROSTINIL
     Indication: PULMONARY ARTERIAL HYPERTENSION
     Dosage: 0.127 ?G/KG/MIN, CONTINUING
     Route: 041
     Dates: start: 20040812

REACTIONS (8)
  - Device leakage [Unknown]
  - Dysphonia [Unknown]
  - Injection site erythema [Unknown]
  - Peripheral coldness [Unknown]
  - Injection site haemorrhage [Unknown]
  - Injection site scab [Unknown]
  - Pallor [Unknown]
  - Drug dose omission [Unknown]
